FAERS Safety Report 7483297-3 (Version None)
Quarter: 2011Q2

REPORT INFORMATION
  Report Type: 
  Country: None (occurrence: None)
  Receive Date: 20110509
  Receipt Date: 20110503
  Transmission Date: 20111010
  Serious: Yes (Disabling)
  Sender: FDA-Public Use
  Company Number: NSR_00226_2011

PATIENT
  Age: 49 Year
  Sex: Female

DRUGS (3)
  1. FLUOXETINE [Concomitant]
  2. FLUOXETINE [Suspect]
     Indication: DEPRESSION
     Dosage: (20 MG QD ORAL )
     Dates: start: 20110401, end: 20110101
  3. FLUOXETINE [Suspect]
     Indication: DEPRESSION
     Dosage: (20 MG QD ORAL )
     Dates: start: 20110101, end: 20110101

REACTIONS (5)
  - DIZZINESS [None]
  - IMPAIRED WORK ABILITY [None]
  - FATIGUE [None]
  - INSOMNIA [None]
  - FEELING ABNORMAL [None]
